FAERS Safety Report 7088383-8 (Version None)
Quarter: 2010Q4

REPORT INFORMATION
  Report Type: 
  Country: None (occurrence: None)
  Receive Date: 20101108
  Receipt Date: 20101103
  Transmission Date: 20110411
  Serious: Yes (Death, Hospitalization)
  Sender: FDA-Public Use
  Company Number: GB-ASTRAZENECA-2010SE50955

PATIENT
  Age: 63 Year
  Sex: Female
  Weight: 55 kg

DRUGS (1)
  1. IRESSA [Suspect]
     Route: 048
     Dates: start: 20091001, end: 20101005

REACTIONS (3)
  - DEATH [None]
  - DIARRHOEA [None]
  - MALAISE [None]
